FAERS Safety Report 11305315 (Version 1)
Quarter: 2015Q3

REPORT INFORMATION
  Report Type: Spontaneous
  Country: US (occurrence: US)
  Receive Date: 20150723
  Receipt Date: 20150723
  Transmission Date: 20151125
  Serious: No
  Sender: FDA-Public Use
  Company Number: US-JNJFOC-20150505427

PATIENT
  Age: 26 Year
  Sex: Female

DRUGS (2)
  1. ZYRTEC [Suspect]
     Active Substance: CETIRIZINE HYDROCHLORIDE
     Route: 065
  2. ZYRTEC [Suspect]
     Active Substance: CETIRIZINE HYDROCHLORIDE
     Indication: SEASONAL ALLERGY
     Dosage: EVERY SINGLE NIGHT
     Route: 065

REACTIONS (4)
  - Pruritus generalised [Unknown]
  - Scratch [Unknown]
  - Sensory disturbance [Unknown]
  - Product label issue [Unknown]
